FAERS Safety Report 6174092-6 (Version None)
Quarter: 2009Q2

REPORT INFORMATION
  Report Type: 
  Country: None (occurrence: None)
  Receive Date: 20090430
  Receipt Date: 20090421
  Transmission Date: 20091009
  Serious: Yes (Hospitalization)
  Sender: FDA-Public Use
  Company Number: PHHY2009US15054

PATIENT
  Age: 23 Year
  Sex: Female

DRUGS (3)
  1. CYCLOSPORINE [Suspect]
     Indication: HISTIOCYTOSIS HAEMATOPHAGIC
     Dosage: 2 MG/KG
  2. METHYLPREDNISOLONE 4MG TAB [Suspect]
     Dosage: 1 G/DAY
  3. METHYLPREDNISOLONE 4MG TAB [Suspect]
     Dosage: 1 MG/KG/DAY

REACTIONS (4)
  - BLOOD CREATININE INCREASED [None]
  - CARDIAC FAILURE ACUTE [None]
  - EJECTION FRACTION DECREASED [None]
  - RENAL FAILURE ACUTE [None]
